FAERS Safety Report 4369763-8 (Version None)
Quarter: 2004Q2

REPORT INFORMATION
  Report Type: 
  Country: None (occurrence: None)
  Receive Date: 20040528
  Receipt Date: 20040517
  Transmission Date: 20050107
  Serious: Yes (Death)
  Sender: FDA-Public Use
  Company Number: 2004UW09620

PATIENT

DRUGS (1)
  1. PROPOFOL [Suspect]
     Indication: CLOSED HEAD INJURY
     Dosage: AT OR ABOVE 150 MCG/KG/MIN FOR LONGER THAN 24 HOURS

REACTIONS (6)
  - BLOOD CALCIUM DECREASED [None]
  - BLOOD CREATINE PHOSPHOKINASE INCREASED [None]
  - CONDUCTION DISORDER [None]
  - LEUKOCYTOSIS [None]
  - LIPIDS INCREASED [None]
  - METABOLIC ACIDOSIS [None]
